FAERS Safety Report 16127437 (Version 4)
Quarter: 2019Q3

REPORT INFORMATION
  Report Type: Spontaneous
  Country: US (occurrence: US)
  Receive Date: 20190328
  Receipt Date: 20190708
  Transmission Date: 20191004
  Serious: No
  Sender: FDA-Public Use
  Company Number: US-PFIZER INC-2019133551

PATIENT
  Age: 56 Year
  Sex: Male
  Weight: 80 kg

DRUGS (1)
  1. LYRICA [Suspect]
     Active Substance: PREGABALIN
     Indication: NEUROPATHY PERIPHERAL
     Dosage: 150 MG, DAILY (TAKE 1 CAPSULE (150 MG TOTAL) BY MOUTH DAILY, MAX DAILY AMOUNT: 150 MG)
     Route: 048

REACTIONS (3)
  - Pain [Unknown]
  - Off label use [Unknown]
  - Product use in unapproved indication [Unknown]
